FAERS Safety Report 6541558-6 (Version None)
Quarter: 2010Q1

REPORT INFORMATION
  Report Type: 
  Country: None (occurrence: None)
  Receive Date: 20100119
  Receipt Date: 20100118
  Transmission Date: 20100710
  Serious: Yes (Hospitalization)
  Sender: FDA-Public Use
  Company Number: KR-ROCHE-672252

PATIENT
  Sex: Female

DRUGS (2)
  1. TAMIFLU [Suspect]
     Route: 065
     Dates: start: 20091109, end: 20091113
  2. TYLENOL (CAPLET) [Concomitant]
     Dosage: DRUG: TYLENOL (NSAID), THE PATIENT RECEIVED 1 DAY AGO (24 HOURS) BEFORE THE ONSET OF THE EVENTS.

REACTIONS (4)
  - ANXIETY [None]
  - EMOTIONAL DISORDER [None]
  - HALLUCINATION, AUDITORY [None]
  - SLEEP DISORDER [None]
